FAERS Safety Report 6085980-3 (Version None)
Quarter: 2009Q1

REPORT INFORMATION
  Report Type: 
  Country: None (occurrence: None)
  Receive Date: 20090220
  Receipt Date: 20090210
  Transmission Date: 20090719
  Serious: Yes (Hospitalization, Other)
  Sender: FDA-Public Use
  Company Number: AU-PFIZER INC-2008088040

PATIENT

DRUGS (1)
  1. LIPITOR [Suspect]
     Dosage: 10 MG, 1X/DAY
     Dates: start: 19950101, end: 20080901

REACTIONS (13)
  - ABDOMINAL DISTENSION [None]
  - ABDOMINAL PAIN UPPER [None]
  - ANGIOEDEMA [None]
  - CHEST PAIN [None]
  - DIZZINESS [None]
  - GASTRITIS [None]
  - LOCAL SWELLING [None]
  - MALAISE [None]
  - NAUSEA [None]
  - PARAESTHESIA [None]
  - PHARYNGEAL OEDEMA [None]
  - PRURITUS [None]
  - URTICARIA [None]
